FAERS Safety Report 13127105 (Version 1)
Quarter: 2017Q1

REPORT INFORMATION
  Report Type: Spontaneous
  Country: US (occurrence: US)
  Receive Date: 20170118
  Receipt Date: 20170118
  Transmission Date: 20170428
  Serious: No
  Sender: FDA-Public Use
  Company Number: US-ROCHE-1840731

PATIENT
  Age: 57 Year
  Sex: Female

DRUGS (35)
  1. FOLIC ACID. [Concomitant]
     Active Substance: FOLIC ACID
     Indication: RHEUMATOID ARTHRITIS
     Dosage: 2 TABLET DAILY
     Route: 065
     Dates: start: 20120814
  2. ASPIRIN. [Concomitant]
     Active Substance: ASPIRIN
     Dosage: 81 MG
     Route: 065
  3. CELEBREX [Concomitant]
     Active Substance: CELECOXIB
     Route: 065
     Dates: start: 20150707
  4. BIOTIN [Concomitant]
     Active Substance: BIOTIN
     Dosage: 5000, DAILY
     Route: 048
  5. ESTRADIOL. [Concomitant]
     Active Substance: ESTRADIOL
     Dosage: DAILY
     Route: 048
  6. ORENCIA [Concomitant]
     Active Substance: ABATACEPT
     Route: 065
     Dates: start: 20090710
  7. VENLAFAXINE [Concomitant]
     Active Substance: VENLAFAXINE HYDROCHLORIDE
     Dosage: DAILY
     Route: 048
  8. ZOLPIDEM TARTRATE. [Concomitant]
     Active Substance: ZOLPIDEM TARTRATE
     Dosage: BEDTIME,
     Route: 065
     Dates: start: 20160630
  9. NEXIUM [Concomitant]
     Active Substance: ESOMEPRAZOLE MAGNESIUM
     Route: 048
     Dates: start: 20140218
  10. ESTRADIOL. [Concomitant]
     Active Substance: ESTRADIOL
     Dosage: EVERY 7 DAYS
     Route: 062
  11. VITAMIN B12 [Concomitant]
     Active Substance: CYANOCOBALAMIN
     Dosage: DAILY
     Route: 048
  12. FLEXERIL [Concomitant]
     Active Substance: CYCLOBENZAPRINE HYDROCHLORIDE
     Dosage: 1 TABLET AT BEDTIME,
     Route: 065
     Dates: start: 20130307
  13. FLONASE (UNITED STATES) [Concomitant]
     Route: 065
     Dates: start: 20081009
  14. XELJANZ [Concomitant]
     Active Substance: TOFACITINIB CITRATE
     Indication: RHEUMATOID ARTHRITIS
     Route: 048
     Dates: start: 20160630, end: 20160801
  15. CYCLOBENZAPRINE [Concomitant]
     Active Substance: CYCLOBENZAPRINE
     Indication: RHEUMATOID ARTHRITIS
     Dosage: 1 (ONE) TABLET AT BEDTIME,
     Route: 065
     Dates: start: 20160913
  16. LIDODERM [Concomitant]
     Active Substance: LIDOCAINE
     Indication: RHEUMATOID ARTHRITIS
     Dosage: 3 PATCH AS NEEDED, 90 PATCH,
     Route: 065
     Dates: start: 20140625
  17. FISH OIL [Concomitant]
     Active Substance: FISH OIL
     Dosage: DAILY
     Route: 048
  18. SALAGEN [Concomitant]
     Active Substance: PILOCARPINE HYDROCHLORIDE
     Indication: SJOGREN^S SYNDROME
     Route: 065
     Dates: start: 20160218
  19. METHOTREXATE. [Concomitant]
     Active Substance: METHOTREXATE
     Indication: RHEUMATOID ARTHRITIS
     Dosage: 6 TABLET WEEKLY,
     Route: 065
     Dates: start: 20160630
  20. TOPAMAX [Concomitant]
     Active Substance: TOPIRAMATE
     Dosage: 1 TABLET DAILY
     Route: 065
     Dates: start: 20150707
  21. NIACIN. [Concomitant]
     Active Substance: NIACIN
     Dosage: DAILY
     Route: 048
  22. PREDNISONE. [Concomitant]
     Active Substance: PREDNISONE
     Dosage: 1-2 TABLET IN THE AM AS DIRECTED
     Route: 065
     Dates: start: 20160822
  23. SKELAXIN [Concomitant]
     Active Substance: METAXALONE
     Dosage: 1 (ONE) TABLET AS NEEDED
     Route: 065
     Dates: start: 20140910
  24. TRICOR [Concomitant]
     Active Substance: FENOFIBRATE
     Route: 048
     Dates: start: 20060421, end: 20060710
  25. VIACTIV [Concomitant]
     Active Substance: CALCIUM\VITAMIN D\VITAMIN K5
     Dosage: 500-500-40MG-UNT-MCG TABLET CH.,WABLE, 1 ORAL AS NEEDED)
     Route: 065
  26. ORENCIA [Concomitant]
     Active Substance: ABATACEPT
  27. ORENCIA [Concomitant]
     Active Substance: ABATACEPT
     Dosage: 1 (ONE) SYRINGE ONCE WEEKLY
     Route: 065
     Dates: start: 20160218
  28. SONATA (UNITED STATES) [Concomitant]
     Route: 065
     Dates: start: 20070504, end: 20070724
  29. RITUXAN [Suspect]
     Active Substance: RITUXIMAB
     Indication: RHEUMATOID ARTHRITIS
     Route: 065
     Dates: start: 201602
  30. SIMPONI [Concomitant]
     Active Substance: GOLIMUMAB
  31. ULTRAM [Concomitant]
     Active Substance: TRAMADOL HYDROCHLORIDE
     Indication: RHEUMATOID ARTHRITIS
     Dosage: 1 (ONE) TABLET AM, 2 TABS IN THE PM,
     Route: 065
     Dates: start: 20160630
  32. TESTOSTERONE CREAM [Concomitant]
     Active Substance: TESTOSTERONE
     Dosage: 1 DAILY
     Route: 065
  33. PROZAC [Concomitant]
     Active Substance: FLUOXETINE HYDROCHLORIDE
     Dosage: DAILY
     Route: 048
  34. REMIFEMIN [Concomitant]
     Active Substance: BLACK COHOSH
     Dosage: 1 ORAL TWO TIMES DAILY
     Route: 048
  35. ZOLOFT [Concomitant]
     Active Substance: SERTRALINE HYDROCHLORIDE
     Route: 048

REACTIONS (1)
  - Headache [Recovered/Resolved]

NARRATIVE: CASE EVENT DATE: 20160714
